FAERS Safety Report 8367518-0 (Version None)
Quarter: 2012Q2

REPORT INFORMATION
  Report Type: 
  Country: None (occurrence: None)
  Receive Date: 20120517
  Receipt Date: 20120412
  Transmission Date: 20120825
  Serious: No
  Sender: FDA-Public Use
  Company Number: US-GLAXOSMITHKLINE-A0974254A

PATIENT
  Age: 59 Year
  Sex: Male
  Weight: 109.1 kg

DRUGS (5)
  1. LORATADINE [Concomitant]
  2. ZANTAC [Concomitant]
  3. VOTRIENT [Suspect]
     Indication: PRODUCT USED FOR UNKNOWN INDICATION
     Dosage: 600MG PER DAY
     Route: 048
  4. MULTI-VITAMIN [Concomitant]
  5. LOPERAMIDE [Concomitant]

REACTIONS (1)
  - DIARRHOEA [None]
